FAERS Safety Report 8063739-5 (Version None)
Quarter: 2012Q1

REPORT INFORMATION
  Report Type: 
  Country: None (occurrence: None)
  Receive Date: 20120123
  Receipt Date: 20120116
  Transmission Date: 20120608
  Serious: Yes (Hospitalization)
  Sender: FDA-Public Use
  Company Number: PHHY2012US003686

PATIENT
  Age: 65 Year
  Sex: Female

DRUGS (3)
  1. HYDROXYCUT [Suspect]
     Indication: WEIGHT DECREASED
     Dosage: UNK
  2. CITALOPRAM HYDROBROMIDE [Suspect]
     Indication: DEPRESSION
     Dosage: 20 MG, UNK
  3. SIMVASTATIN [Concomitant]
     Dosage: 40 MG, UNK

REACTIONS (7)
  - VISUAL IMPAIRMENT [None]
  - HEADACHE [None]
  - PHOTOPHOBIA [None]
  - NAUSEA [None]
  - MUSCULAR WEAKNESS [None]
  - HYPERACUSIS [None]
  - CEREBRAL VASOCONSTRICTION [None]
